FAERS Safety Report 4487219-9 (Version None)
Quarter: 2004Q4

REPORT INFORMATION
  Report Type: 
  Country: None (occurrence: None)
  Receive Date: 20041022
  Receipt Date: 20041015
  Transmission Date: 20050328
  Serious: No
  Sender: FDA-Public Use
  Company Number: 2004UW21552

PATIENT
  Age: 54 Year
  Sex: Female

DRUGS (3)
  1. PULMICORT [Suspect]
     Dosage: 2 MG IH
     Route: 055
  2. VENTOLIN [Suspect]
     Dosage: 2.5 MG IH
     Route: 055
  3. PARISATIN [Concomitant]

REACTIONS (3)
  - HYPOAESTHESIA [None]
  - TONGUE OEDEMA [None]
  - URTICARIA [None]
